FAERS Safety Report 23994925 (Version 1)
Quarter: 2024Q2

REPORT INFORMATION
  Report Type: Spontaneous
  Country: BE (occurrence: BE)
  Receive Date: 20240620
  Receipt Date: 20240620
  Transmission Date: 20240716
  Serious: Yes (Life-Threatening, Other)
  Sender: FDA-Public Use
  Company Number: BE-PFIZER INC-PV202400079159

PATIENT
  Age: 28 Year
  Sex: Female

DRUGS (15)
  1. METHOTREXATE SODIUM [Suspect]
     Active Substance: METHOTREXATE SODIUM
     Indication: Gestational trophoblastic tumour
     Dosage: 1 MG/KG ON DAYS 1, 3, 5 AND 7,3RD CYCLE
     Route: 030
  2. METHOTREXATE SODIUM [Suspect]
     Active Substance: METHOTREXATE SODIUM
     Dosage: 100 MG/M2,  DAY 1 SIXTH COURSE
     Route: 042
  3. METHOTREXATE SODIUM [Suspect]
     Active Substance: METHOTREXATE SODIUM
     Dosage: 200 MG/M2, 100 MG/M2, DAY 2 SIXTH COURSE
     Route: 042
  4. PACLITAXEL [Suspect]
     Active Substance: PACLITAXEL
     Indication: Gestational trophoblastic tumour
     Dosage: UNK
  5. LEUCOVORIN [Suspect]
     Active Substance: LEUCOVORIN\LEUCOVORIN CALCIUM
     Indication: Gestational trophoblastic tumour
     Dosage: 15 MG ON DAYS 2, 4, 6 AND 8,FOR 4 DOSES 3RD CYCLE
     Route: 048
  6. DACTINOMYCIN [Suspect]
     Active Substance: DACTINOMYCIN
     Indication: Gestational trophoblastic tumour
     Dosage: 4 CYCLES (DOSE OF 0.5 MG/D FROM D1 TO D5 EVERY 2 WEEKS)
  7. AVELUMAB [Suspect]
     Active Substance: AVELUMAB
     Indication: Gestational trophoblastic tumour
     Dosage: UNK
  8. ETOPOSIDE [Suspect]
     Active Substance: ETOPOSIDE
     Indication: Gestational trophoblastic tumour
     Dosage: 100 MG/M2,  DAY 1 SIXTH COURSE
     Route: 042
  9. ETOPOSIDE [Suspect]
     Active Substance: ETOPOSIDE
     Dosage: 100 MG/M2, DAY 2  SIXTH COURSE
     Route: 042
  10. ACTINOMYCIN D [Suspect]
     Active Substance: DACTINOMYCIN
     Indication: Gestational trophoblastic tumour
     Dosage: 0 MG, DAY 1 SIXTH COURSE
     Route: 042
  11. ACTINOMYCIN D [Suspect]
     Active Substance: DACTINOMYCIN
     Dosage: 5 MG, DAY 1 SIXTH COURSE
     Route: 042
  12. ACTINOMYCIN D [Suspect]
     Active Substance: DACTINOMYCIN
     Dosage: 0 MG, DAY 2 SIXTH COURSE
     Route: 042
  13. ACTINOMYCIN D [Suspect]
     Active Substance: DACTINOMYCIN
     Dosage: 5 MG,DAY 2  SIXTH COURSE
     Route: 042
  14. CYCLOPHOSPHAMIDE [Suspect]
     Active Substance: CYCLOPHOSPHAMIDE
     Indication: Gestational trophoblastic tumour
     Dosage: 600 MG/M2 ,DAY 8  SIXTH COURSE
     Route: 042
  15. VINCRISTINE [Suspect]
     Active Substance: VINCRISTINE
     Indication: Gestational trophoblastic tumour
     Dosage: 1 MG/M2,  DAY 8 SIXTH COURSE
     Route: 042

REACTIONS (3)
  - Drug resistance [Recovered/Resolved]
  - Off label use [Unknown]
  - Off label use [Unknown]
